FAERS Safety Report 12691521 (Version 1)
Quarter: 2016Q3

REPORT INFORMATION
  Report Type: Report from Study
  Country: US (occurrence: US)
  Receive Date: 20160826
  Receipt Date: 20160826
  Transmission Date: 20161109
  Serious: Yes (Other)
  Sender: FDA-Public Use
  Company Number: US-VALIDUS PHARMACEUTICALS LLC-US-2013VAL000646

PATIENT

DRUGS (1)
  1. ROCALTROL [Suspect]
     Active Substance: CALCITRIOL
     Indication: HYPOPHOSPHATAEMIC RICKETS
     Dosage: 0.25 ?G, 2 IN 1 D
     Route: 048

REACTIONS (5)
  - Dry skin [Unknown]
  - Arthropod bite [Unknown]
  - Haemangioma [Recovered/Resolved]
  - Pain in extremity [Unknown]
  - Rash papular [Recovered/Resolved]
